FAERS Safety Report 25670518 (Version 1)
Quarter: 2025Q3

REPORT INFORMATION
  Report Type: Spontaneous
  Country: US (occurrence: US)
  Receive Date: 20250812
  Receipt Date: 20250812
  Transmission Date: 20251021
  Serious: Yes (Hospitalization)
  Sender: FERRING
  Company Number: US-FERRINGPH-2025FE04242

PATIENT

DRUGS (2)
  1. ADSTILADRIN [Suspect]
     Active Substance: NADOFARAGENE FIRADENOVEC-VNCG
     Indication: Product used for unknown indication
     Route: 065
     Dates: start: 20250716, end: 20250716
  2. OXYBUTYNIN [Concomitant]
     Active Substance: OXYBUTYNIN
     Indication: Product used for unknown indication
     Route: 065

REACTIONS (5)
  - Abdominal pain lower [Unknown]
  - Expulsion of medication [Recovered/Resolved]
  - Pain [Recovered/Resolved]
  - Bladder spasm [Recovered/Resolved]
  - Bladder spasm [Unknown]

NARRATIVE: CASE EVENT DATE: 20250716
